FAERS Safety Report 5801969-0 (Version None)
Quarter: 2008Q3

REPORT INFORMATION
  Report Type: 
  Country: None (occurrence: None)
  Receive Date: 20080702
  Receipt Date: 20080623
  Transmission Date: 20090109
  Serious: Yes (Death, Other)
  Sender: FDA-Public Use
  Company Number: 2008-02110

PATIENT
  Age: 56 Year
  Sex: Female
  Weight: 51 kg

DRUGS (27)
  1. VELCADE [Suspect]
     Indication: MULTIPLE MYELOMA
     Dosage: 1.9 MG, INTRAVENOUS; 1.5 MG, INTRAVENOUS
     Route: 042
     Dates: start: 20071009, end: 20071102
  2. VELCADE [Suspect]
     Indication: MULTIPLE MYELOMA
     Dosage: 1.9 MG, INTRAVENOUS; 1.5 MG, INTRAVENOUS
     Route: 042
     Dates: start: 20080313, end: 20080512
  3. DEXAMETHASONE TAB [Suspect]
     Indication: MULTIPLE MYELOMA
     Dosage: 10 MG, ORAL; 20 MG, INTRAVENOUS; 10 MG, ORAL; 20 MG, INTRAVENOUS
     Dates: start: 20071010, end: 20071102
  4. DEXAMETHASONE TAB [Suspect]
     Indication: MULTIPLE MYELOMA
     Dosage: 10 MG, ORAL; 20 MG, INTRAVENOUS; 10 MG, ORAL; 20 MG, INTRAVENOUS
     Dates: end: 20071103
  5. DEXAMETHASONE TAB [Suspect]
     Indication: MULTIPLE MYELOMA
     Dosage: 10 MG, ORAL; 20 MG, INTRAVENOUS; 10 MG, ORAL; 20 MG, INTRAVENOUS
     Dates: end: 20080424
  6. DEXAMETHASONE TAB [Suspect]
     Indication: MULTIPLE MYELOMA
     Dosage: 10 MG, ORAL; 20 MG, INTRAVENOUS; 10 MG, ORAL; 20 MG, INTRAVENOUS
     Dates: end: 20080512
  7. ALOSENN (TARAXACUM OFFICINALE, ACHILLEA, SENNA LEAF, RUBIA ROOT TINCTU [Concomitant]
  8. SENNA (SENNA) [Concomitant]
  9. LASIX [Concomitant]
  10. AMBROXOL HYDROCHLORIDE (AMBROXOL HYDROCHLORIDE) [Concomitant]
  11. MUCOSTA (REBAMIPIDE) [Concomitant]
  12. METHYCOBAL (MECOBALAMIN) [Concomitant]
  13. JUVELA NICOTINATE (TOCOPHERYL NICOTINATE) [Concomitant]
  14. MAGNESIUM OXIDE (MAGNESIUM OXIDE) [Concomitant]
  15. AMLODIPINE BESYLATE [Concomitant]
  16. ALLOPURINOL [Concomitant]
  17. FAMOTIDINE [Concomitant]
  18. DIFLUCAN [Concomitant]
  19. ACYCLOVIR [Concomitant]
  20. BIAPENEM (FISH OIL) [Concomitant]
  21. LEVOFLOXACIN [Concomitant]
  22. IMIPENEM (IMIPENEM) [Concomitant]
  23. ZOMETA [Concomitant]
  24. MEROPEN (MEROPENEM) [Concomitant]
  25. ADONA (CARBAZOCHROME SODIUM SULFONATE) [Concomitant]
  26. TRANSAMIN (TRANEXAMIC ACID) [Concomitant]
  27. RED BLOOD CELLS [Concomitant]

REACTIONS (12)
  - ANAEMIA [None]
  - BRONCHITIS [None]
  - DIARRHOEA [None]
  - DISEASE PROGRESSION [None]
  - DYSGRAPHIA [None]
  - GAIT DISTURBANCE [None]
  - HOT FLUSH [None]
  - INTRACRANIAL HAEMATOMA [None]
  - NEUROPATHY PERIPHERAL [None]
  - PYREXIA [None]
  - SUBDURAL HAEMATOMA [None]
  - THROMBOCYTOPENIA [None]
